FAERS Safety Report 19718681 (Version 2)
Quarter: 2025Q2

REPORT INFORMATION
  Report Type: Spontaneous
  Country: IT (occurrence: IT)
  Receive Date: 20210818
  Receipt Date: 20250603
  Transmission Date: 20250717
  Serious: Yes (Hospitalization, Other)
  Sender: AUROBINDO
  Company Number: IT-GLAXOSMITHKLINE-IT2021GSK116193

PATIENT
  Age: 33 Year
  Sex: Female

DRUGS (18)
  1. ATENOLOL [Suspect]
     Active Substance: ATENOLOL
     Indication: Phaeochromocytoma
     Dosage: 12.5 MILLIGRAM, ONCE A DAY
     Route: 065
  2. DOXAZOSIN [Suspect]
     Active Substance: DOXAZOSIN MESYLATE
     Indication: Phaeochromocytoma
     Route: 065
  3. HYDROCHLOROTHIAZIDE [Suspect]
     Active Substance: HYDROCHLOROTHIAZIDE
     Indication: Hypertension
     Dosage: 6.25 MILLIGRAM, ONCE A DAY
     Route: 065
  4. BISOPROLOL [Suspect]
     Active Substance: BISOPROLOL
     Indication: Hypertension
     Dosage: 2.5 MILLIGRAM, ONCE A DAY
     Route: 065
  5. INSULIN GLARGINE [Suspect]
     Active Substance: INSULIN GLARGINE
     Indication: Gestational diabetes
     Route: 065
  6. INSULIN LISPRO [Suspect]
     Active Substance: INSULIN LISPRO
     Indication: Gestational diabetes
     Route: 065
  7. LABETALOL [Suspect]
     Active Substance: LABETALOL
     Indication: Hypertensive crisis
     Route: 042
  8. LABETALOL [Suspect]
     Active Substance: LABETALOL
     Route: 042
  9. MAGNESIUM SULFATE [Suspect]
     Active Substance: MAGNESIUM SULFATE
     Indication: Blood pressure increased
     Route: 065
  10. MAGNESIUM SULFATE [Suspect]
     Active Substance: MAGNESIUM SULFATE
     Indication: Arrhythmia
     Route: 042
  11. METHYLDOPA [Suspect]
     Active Substance: METHYLDOPA
     Indication: Hypertension
     Dosage: 1500 MILLIGRAM, ONCE A DAY(500 MG, TID)
     Route: 065
  12. METOCLOPRAMIDE [Suspect]
     Active Substance: METOCLOPRAMIDE
     Indication: Nausea
     Dosage: 10 MILLIGRAM, ONCE A DAY
     Route: 048
  13. METOCLOPRAMIDE [Suspect]
     Active Substance: METOCLOPRAMIDE
     Indication: Dyspepsia
     Dosage: 20 MILLIGRAM, ONCE A DAY(10 MG, BID)
     Route: 065
  14. NIFEDIPINE [Suspect]
     Active Substance: NIFEDIPINE
     Indication: Blood pressure inadequately controlled
     Dosage: 30 MILLIGRAM, ONCE A DAY
     Route: 065
  15. NIFEDIPINE [Suspect]
     Active Substance: NIFEDIPINE
     Dosage: 20 MILLIGRAM, ONCE A DAY
     Route: 065
  16. POTASSIUM CHLORIDE [Suspect]
     Active Substance: POTASSIUM CHLORIDE
     Indication: Hypokalaemia
     Route: 065
  17. URAPIDIL [Suspect]
     Active Substance: URAPIDIL
     Indication: Blood pressure increased
     Route: 040
  18. URAPIDIL [Suspect]
     Active Substance: URAPIDIL
     Route: 042

REACTIONS (20)
  - Headache [Unknown]
  - Hypertension [Unknown]
  - Phaeochromocytoma crisis [Unknown]
  - Blood catecholamines abnormal [Unknown]
  - Hypokalaemia [Unknown]
  - Illness [Unknown]
  - Asthenia [Unknown]
  - Irritability [Unknown]
  - Skin striae [Unknown]
  - Tachycardia [Unknown]
  - Myalgia [Unknown]
  - Palpitations [Unknown]
  - Anxiety [Unknown]
  - Phaeochromocytoma [Unknown]
  - Renal disorder [Unknown]
  - Proteinuria [Unknown]
  - Premature labour [Unknown]
  - Live birth [Unknown]
  - Exposure during pregnancy [Unknown]
  - Product selection error [Unknown]
